FAERS Safety Report 8942034 (Version 4)
Quarter: 2012Q4

REPORT INFORMATION
  Report Type: 
  Country: JP (occurrence: JP)
  Receive Date: 20121130
  Receipt Date: 20121227
  Transmission Date: 20130627
  Serious: Yes (Hospitalization)
  Sender: FDA-Public Use
  Company Number: JP-ABBOTT-12P-087-1012333-00

PATIENT
  Sex: Female
  Weight: 48 kg

DRUGS (6)
  1. NORVIR [Suspect]
     Indication: HIV INFECTION
     Dates: start: 201009
  2. ATAZANAVIR [Suspect]
     Indication: HIV INFECTION
     Dates: start: 201009, end: 201105
  3. ATAZANAVIR [Suspect]
  4. EMTRICITABINE W/TENOFOVIR DISOPROXIL FUMARATE [Suspect]
     Indication: HIV INFECTION
     Dates: start: 201009, end: 201105
  5. ABACAVIR SULFATE W/LAMIVUDINE [Suspect]
     Indication: HIV INFECTION
     Dates: end: 201111
  6. ZIDOVUDINE W/LAMIVUDINE [Suspect]
     Indication: HIV INFECTION
     Dates: start: 201108

REACTIONS (6)
  - Ataxia [Unknown]
  - Haemolytic anaemia [Recovered/Resolved]
  - Dehydration [Recovered/Resolved]
  - Renal impairment [Recovered/Resolved]
  - Gait disturbance [Recovered/Resolved]
  - Nausea [Recovered/Resolved]
